FAERS Safety Report 9877821 (Version 3)
Quarter: 2014Q3

REPORT INFORMATION
  Report Type: Spontaneous
  Country: US (occurrence: None)
  Receive Date: 20140204
  Receipt Date: 20140707
  Transmission Date: 20150326
  Serious: Yes (Other)
  Sender: FDA-Public Use
  Company Number: 2014-US-000754

PATIENT
  Age: 57 Year
  Sex: Female
  Weight: 55.8 kg

DRUGS (15)
  1. MEPRON (METHYLPREDNISOLONE) [Concomitant]
  2. AZITHROMYCIN [Concomitant]
     Active Substance: AZITHROMYCIN ANHYDROUS
  3. AMOXICILLIN (AMOXICILLIN) [Concomitant]
     Active Substance: AMOXICILLIN
  4. CELEBREX [Concomitant]
     Active Substance: CELECOXIB
  5. DEXILANT [Concomitant]
     Active Substance: DEXLANSOPRAZOLE
  6. VIVELLE (ESTRADIOL) [Concomitant]
  7. PROGESTERONE (PROGESTERONE) [Concomitant]
  8. XYREM [Suspect]
     Active Substance: SODIUM OXYBATE
     Indication: SLEEP DISORDER
     Route: 048
     Dates: start: 20140119, end: 201401
  9. PROBENECID (PROBENECID) [Concomitant]
  10. NYSTATIN (NYSTATIN) [Concomitant]
  11. DIFLUCAN [Concomitant]
     Active Substance: FLUCONAZOLE
  12. TESTOSTERONE (TESTOSTERONE PHENYLPROPIONATE) [Concomitant]
  13. MEFLOQUINE (MEFLOQUINE) [Concomitant]
  14. HYDROXYCHLOROQUINE (HYDROXYCHLOROQUINE) [Concomitant]
  15. NALTREXONE (NALTREXONE HYDROCHLORIDE) [Concomitant]

REACTIONS (7)
  - Diarrhoea [None]
  - Continuous positive airway pressure [None]
  - Respiratory rate decreased [None]
  - Drug ineffective [None]
  - Headache [None]
  - Nausea [None]
  - Malaise [None]

NARRATIVE: CASE EVENT DATE: 201401
